FAERS Safety Report 7431079-0 (Version None)
Quarter: 2011Q2

REPORT INFORMATION
  Report Type: 
  Country: None (occurrence: None)
  Receive Date: 20110421
  Receipt Date: 20110411
  Transmission Date: 20111010
  Serious: Yes (Life-Threatening, Hospitalization, Other)
  Sender: FDA-Public Use
  Company Number: US-ELI_LILLY_AND_COMPANY-US201104003765

PATIENT
  Sex: Male

DRUGS (14)
  1. ALBUTEROL [Concomitant]
  2. SIMVASTATIN [Concomitant]
  3. VITAMINS                           /90003601/ [Concomitant]
  4. FLOMAX [Concomitant]
  5. IPRATROPIUM BROMIDE [Concomitant]
  6. MELOXICAM [Concomitant]
  7. NAMENDA [Concomitant]
  8. SEREVENT [Concomitant]
  9. EXELON [Concomitant]
  10. FLUNISOLIDE [Concomitant]
  11. PULMICORT RESPULES [Concomitant]
  12. MAGNESIUM [Concomitant]
  13. FORTEO [Suspect]
     Indication: OSTEOPOROSIS
     Dosage: 20 UG, QD
     Route: 065
     Dates: start: 20100101
  14. TUMS                               /00193601/ [Concomitant]

REACTIONS (7)
  - MEMORY IMPAIRMENT [None]
  - CARDIAC DISORDER [None]
  - FLATULENCE [None]
  - GAIT DISTURBANCE [None]
  - ACCIDENTAL EXPOSURE [None]
  - PAIN [None]
  - LOSS OF CONSCIOUSNESS [None]
